FAERS Safety Report 9149278 (Version 3)
Quarter: 2013Q2

REPORT INFORMATION
  Report Type: Spontaneous
  Country: SE (occurrence: SE)
  Receive Date: 20130308
  Receipt Date: 20130523
  Transmission Date: 20140414
  Serious: Yes (Hospitalization, Other)
  Sender: FDA-Public Use
  Company Number: SE-PFIZER INC-2013045957

PATIENT
  Age: 48 Year
  Sex: Female

DRUGS (3)
  1. ANSATIPINE [Suspect]
     Indication: GASTROINTESTINAL DISORDER
     Dosage: 150 MG, 2X/DAY
     Dates: start: 20130130, end: 20130201
  2. AZITROMAX [Suspect]
     Indication: ANTIBIOTIC THERAPY
     Dosage: 40 MG/ML, SINGLE
     Route: 048
     Dates: start: 201301, end: 201301
  3. BETAPRED [Concomitant]
     Dosage: UNK
     Dates: start: 20130128, end: 20130202

REACTIONS (24)
  - Night sweats [Not Recovered/Not Resolved]
  - Chromaturia [Not Recovered/Not Resolved]
  - Hypoacusis [Not Recovered/Not Resolved]
  - Dysphagia [Not Recovered/Not Resolved]
  - Swelling [Not Recovered/Not Resolved]
  - Abdominal pain [Not Recovered/Not Resolved]
  - Paraesthesia [Not Recovered/Not Resolved]
  - Anosmia [Not Recovered/Not Resolved]
  - Ageusia [Not Recovered/Not Resolved]
  - Sputum increased [Not Recovered/Not Resolved]
  - Constipation [Not Recovered/Not Resolved]
  - Formication [Not Recovered/Not Resolved]
  - Palpitations [Not Recovered/Not Resolved]
  - Fatigue [Not Recovered/Not Resolved]
  - Asthenia [Not Recovered/Not Resolved]
  - Dizziness [Not Recovered/Not Resolved]
  - Oral candidiasis [Recovered/Resolved]
  - Nasal dryness [Not Recovered/Not Resolved]
  - Ear disorder [Not Recovered/Not Resolved]
  - Insomnia [Not Recovered/Not Resolved]
  - Skin disorder [Not Recovered/Not Resolved]
  - Gastrointestinal stoma complication [Not Recovered/Not Resolved]
  - Post procedural complication [Not Recovered/Not Resolved]
  - Social avoidant behaviour [Not Recovered/Not Resolved]
